FAERS Safety Report 15381590 (Version 1)
Quarter: 2018Q3

REPORT INFORMATION
  Report Type: Spontaneous
  Country: US (occurrence: US)
  Receive Date: 20180913
  Receipt Date: 20180913
  Transmission Date: 20181010
  Serious: Yes (Death, Life-Threatening, Hospitalization, Disabling, Other)
  Sender: FDA-Public Use
  Company Number: US-ENDO PHARMACEUTICALS INC-2018-041172

PATIENT
  Age: 26 Year
  Sex: Male

DRUGS (9)
  1. CARBAMAZEPINE. [Suspect]
     Active Substance: CARBAMAZEPINE
     Indication: EPILEPSY
     Dosage: UNK UNKNOWN, UNKNOWN
     Route: 065
  2. RISPERIDONE. [Suspect]
     Active Substance: RISPERIDONE
     Indication: SCHIZOPHRENIA
     Dosage: UNK UNKNOWN, UNKNOWN
     Route: 065
  3. PROZAC [Suspect]
     Active Substance: FLUOXETINE HYDROCHLORIDE
     Indication: DEPRESSION
     Dosage: UNK UNKNOWN, UNKNOWN
     Route: 065
  4. VISTARIL                           /00058402/ [Suspect]
     Active Substance: HYDROXYZINE HYDROCHLORIDE
     Indication: ANXIETY
     Dosage: UNK UNKNOWN, UNKNOWN
     Route: 065
  5. HYDROMORPHONE [Suspect]
     Active Substance: HYDROMORPHONE
     Indication: PAIN
     Dosage: UNK UNKNOWN, UNKNOWN
     Route: 065
  6. ZOLOFT [Suspect]
     Active Substance: SERTRALINE HYDROCHLORIDE
     Indication: DEPRESSION
     Dosage: UNK UNKNOWN, UNKNOWN
     Route: 065
  7. PERCOCET [Suspect]
     Active Substance: ACETAMINOPHEN\OXYCODONE HYDROCHLORIDE
     Indication: PAIN
     Dosage: UNK UNKNOWN, UNKNOWN
     Route: 065
  8. TRAZODONE HYDROCHLORIDE TABLETS [Suspect]
     Active Substance: TRAZODONE HYDROCHLORIDE
     Indication: DEPRESSION
     Dosage: UNK UNKNOWN, UNKNOWN
     Route: 065
  9. MIRTAZAPINE. [Suspect]
     Active Substance: MIRTAZAPINE
     Indication: DEPRESSION
     Dosage: UNK UNKNOWN, UNKNOWN
     Route: 065

REACTIONS (30)
  - Life expectancy shortened [Unknown]
  - Physical assault [Recovered/Resolved]
  - Mental impairment [Unknown]
  - Chest pain [Unknown]
  - Metastasis [Unknown]
  - Physical assault [Unknown]
  - Deafness [Unknown]
  - Malnutrition [Unknown]
  - Retroperitoneal haemorrhage [Unknown]
  - Pain [Unknown]
  - Emotional distress [Unknown]
  - Hepatic failure [Fatal]
  - Haematoma [Recovered/Resolved]
  - Vomiting [Unknown]
  - Orchidectomy [Unknown]
  - Skin abrasion [Recovered/Resolved]
  - Internal haemorrhage [Fatal]
  - Haematochezia [Unknown]
  - Loss of consciousness [Recovered/Resolved]
  - Testis cancer [Unknown]
  - Peritoneal haemorrhage [Unknown]
  - Testicular rupture [Unknown]
  - Drug dependence [Unknown]
  - Back pain [Unknown]
  - Abdominal pain upper [Unknown]
  - Renal failure [Fatal]
  - Hepatitis B [Unknown]
  - Intervertebral disc protrusion [Recovered/Resolved]
  - Injury [Unknown]
  - Abdominal pain [Unknown]

NARRATIVE: CASE EVENT DATE: 20150421
